FAERS Safety Report 9631508 (Version 1)
Quarter: 2013Q4

REPORT INFORMATION
  Report Type: Spontaneous
  Country: US (occurrence: None)
  Receive Date: 20131017
  Receipt Date: 20131017
  Transmission Date: 20140711
  Serious: Yes (Other)
  Sender: FDA-Public Use
  Company Number: None

PATIENT
  Sex: 0

DRUGS (1)
  1. UCERIS [Suspect]
     Indication: COLITIS ULCERATIVE
     Route: 048

REACTIONS (3)
  - Fatigue [None]
  - Dysgeusia [None]
  - Paraesthesia oral [None]
